FAERS Safety Report 20335527 (Version 1)
Quarter: 2022Q1

REPORT INFORMATION
  Report Type: Spontaneous
  Country: US (occurrence: US)
  Receive Date: 20220114
  Receipt Date: 20220114
  Transmission Date: 20220423
  Serious: Yes (Hospitalization, Other)
  Sender: FDA-Public Use
  Company Number: US-NOVARTISPH-NVSC2022US006318

PATIENT
  Sex: Male
  Weight: 104.8 kg

DRUGS (1)
  1. PROMACTA [Suspect]
     Active Substance: ELTROMBOPAG OLAMINE
     Indication: Immune thrombocytopenia
     Dosage: 75 MG, QD
     Route: 048
     Dates: start: 201411

REACTIONS (3)
  - Bullous haemorrhagic dermatosis [Recovering/Resolving]
  - Platelet count decreased [Recovering/Resolving]
  - Petechiae [Recovering/Resolving]
